FAERS Safety Report 4434275-X (Version None)
Quarter: 2004Q3

REPORT INFORMATION
  Report Type: 
  Country: None (occurrence: None)
  Receive Date: 20040825
  Receipt Date: 20040812
  Transmission Date: 20050211
  Serious: Yes (Death)
  Sender: FDA-Public Use
  Company Number: 2004019194

PATIENT
  Age: 82 Year
  Sex: Male

DRUGS (1)
  1. LUSTRAL (SERTRALINE) [Suspect]
     Indication: DEPRESSION
     Dosage: 100 MG (1 IN 1 D), ORAL
     Route: 048
     Dates: start: 20020701

REACTIONS (4)
  - FEELING HOT [None]
  - RESTLESSNESS [None]
  - SUDDEN DEATH [None]
  - SWELLING FACE [None]
